FAERS Safety Report 18328239 (Version 2)
Quarter: 2020Q4

REPORT INFORMATION
  Report Type: Spontaneous
  Country: US (occurrence: US)
  Receive Date: 20200929
  Receipt Date: 20201022
  Transmission Date: 20210113
  Serious: No
  Sender: FDA-Public Use
  Company Number: US-B.I. PHARMACEUTICALS,INC./RIDGEFIELD-2020-BI-050998

PATIENT
  Age: 51 Year
  Sex: Female

DRUGS (2)
  1. SPIRIVA RESPIMAT [Suspect]
     Active Substance: TIOTROPIUM BROMIDE
     Indication: CHRONIC OBSTRUCTIVE PULMONARY DISEASE
     Dosage: TWO INHALATIONS OF THE 1.25 MCG INHALER DAILY
     Route: 065
     Dates: start: 202008
  2. SPIRIVA RESPIMAT [Suspect]
     Active Substance: TIOTROPIUM BROMIDE

REACTIONS (4)
  - Off label use [Unknown]
  - Device delivery system issue [Unknown]
  - Product quality issue [Unknown]
  - Overdose [Recovered/Resolved]

NARRATIVE: CASE EVENT DATE: 202008
